FAERS Safety Report 9322565 (Version 2)
Quarter: 2013Q2

REPORT INFORMATION
  Report Type: Report from Study
  Country: US (occurrence: US)
  Receive Date: 20130531
  Receipt Date: 20130621
  Transmission Date: 20140414
  Serious: Yes (Hospitalization)
  Sender: FDA-Public Use
  Company Number: US-PFIZER INC-2013155605

PATIENT
  Age: 57 Year
  Sex: Female
  Weight: 87 kg

DRUGS (4)
  1. TORISEL [Suspect]
     Indication: HEAD AND NECK CANCER METASTATIC
     Dosage: CYCLE 1: 25MG IV OVER 30-60 MINUTES ON DAYS 1 ,8 ,15 AND 22
     Route: 042
     Dates: start: 20130423
  2. ERBITUX [Suspect]
     Indication: HEAD AND NECK CANCER METASTATIC
     Dosage: CYCLE 1: 400 MG/M2, CYCLIC (OVER 120 MIN  ON DAY 1)
     Route: 042
     Dates: start: 20130423
  3. ERBITUX [Suspect]
     Dosage: CYCLE 1: 250 MG/M2, CYCLIC OVER 60 MINS ON DAYS 8, 15 AND 22
     Route: 042
  4. ERBITUX [Suspect]
     Dosage: CYCLE 2: 250 MG/M2 IV OVER 60 MIN ON DAY 1, 8, 15 AND 22
     Route: 042

REACTIONS (2)
  - Laryngeal oedema [Recovered/Resolved]
  - Bacterial infection [Not Recovered/Not Resolved]
